FAERS Safety Report 10117626 (Version 1)
Quarter: 2014Q2

REPORT INFORMATION
  Report Type: Other
  Country: SG (occurrence: SG)
  Receive Date: 20140425
  Receipt Date: 20140425
  Transmission Date: 20141212
  Serious: Yes (Hospitalization)
  Sender: FDA-Public Use
  Company Number: SG-ASTELLAS-2014JP003802

PATIENT
  Age: 69 Year
  Sex: Male
  Weight: 60 kg

DRUGS (9)
  1. TACROLIMUS [Suspect]
     Indication: IMMUNOSUPPRESSANT DRUG THERAPY
     Dosage: UNK, TWICE DAILY
     Route: 048
     Dates: start: 20100202, end: 20100205
  2. ACYCLOVIR                          /00587301/ [Concomitant]
     Indication: ANTIVIRAL TREATMENT
     Route: 042
     Dates: start: 20100205, end: 20100212
  3. HALOPERIDOL [Concomitant]
     Indication: PSYCHOTIC DISORDER
     Dates: start: 20100212
  4. CEFEPIME [Concomitant]
     Indication: ANTIBIOTIC THERAPY
     Route: 065
  5. HEPATITIS B IMMUNOGLOBULIN [Concomitant]
     Indication: HEPATITIS B
     Dosage: UNK UNK, ONCE DAILY
     Route: 042
     Dates: start: 20100202, end: 20100208
  6. HYDROCORTISONE [Concomitant]
     Indication: IMMUNOSUPPRESSANT DRUG THERAPY
     Route: 042
     Dates: start: 20100202, end: 20100214
  7. MYCOPHENOLATE [Concomitant]
     Indication: IMMUNOSUPPRESSANT DRUG THERAPY
     Route: 042
     Dates: start: 20100201, end: 20100214
  8. OLANZAPINE [Concomitant]
     Indication: PSYCHOTIC DISORDER
     Route: 048
     Dates: start: 20100213
  9. PANTOPRAZOLE [Concomitant]
     Indication: PROPHYLAXIS
     Route: 042
     Dates: start: 20100201, end: 20100213

REACTIONS (5)
  - Confusional state [Recovered/Resolved]
  - Echolalia [Recovered/Resolved]
  - Disorientation [Recovered/Resolved]
  - Blood creatinine increased [Recovered/Resolved]
  - Dehydration [Recovered/Resolved]
